FAERS Safety Report 8034564-6 (Version None)
Quarter: 2012Q1

REPORT INFORMATION
  Report Type: 
  Country: None (occurrence: None)
  Receive Date: 20120110
  Receipt Date: 20111107
  Transmission Date: 20120608
  Serious: Yes (Hospitalization)
  Sender: FDA-Public Use
  Company Number: DE-ASTRAZENECA-2011SE67891

PATIENT
  Age: 30 Year
  Sex: Female

DRUGS (6)
  1. VENLAFAXINE HYDROCHLORIDE [Suspect]
     Route: 048
     Dates: start: 20090101
  2. PANTOPRAZOLE SODIUM [Concomitant]
     Route: 048
     Dates: start: 20110506
  3. LORAZEPAM [Concomitant]
     Route: 048
     Dates: start: 20110520, end: 20110526
  4. SEROQUEL XR [Suspect]
     Route: 048
     Dates: start: 20090101
  5. TOPAMAX [Suspect]
     Route: 048
     Dates: start: 20110518, end: 20110522
  6. TOPAMAX [Suspect]
     Route: 048
     Dates: start: 20110513, end: 20110517

REACTIONS (1)
  - ACCOMMODATION DISORDER [None]
